FAERS Safety Report 24351439 (Version 1)
Quarter: 2024Q3

REPORT INFORMATION
  Report Type: Report from Study
  Country: AT (occurrence: AT)
  Receive Date: 20240923
  Receipt Date: 20240923
  Transmission Date: 20241017
  Serious: No
  Sender: ROCHE
  Company Number: AT-ROCHE-2553955

PATIENT
  Age: 43 Year
  Sex: Female
  Weight: 65.0 kg

DRUGS (40)
  1. HERCEPTIN [Suspect]
     Active Substance: TRASTUZUMAB
     Indication: HER2 positive breast cancer
     Route: 042
     Dates: start: 20181016, end: 20181016
  2. HERCEPTIN [Suspect]
     Active Substance: TRASTUZUMAB
     Route: 042
     Dates: start: 20181107, end: 20200115
  3. PERJETA [Suspect]
     Active Substance: PERTUZUMAB
     Indication: HER2 positive breast cancer
     Route: 042
     Dates: start: 20181016
  4. PERJETA [Suspect]
     Active Substance: PERTUZUMAB
     Route: 042
     Dates: start: 20181107, end: 20200115
  5. TAXOL [Suspect]
     Active Substance: PACLITAXEL
     Indication: HER2 positive breast cancer
     Route: 042
     Dates: start: 20181017, end: 20191016
  6. TAXOL [Suspect]
     Active Substance: PACLITAXEL
     Route: 042
     Dates: start: 20191023, end: 20200219
  7. XGEVA [Concomitant]
     Active Substance: DENOSUMAB
     Indication: Metastases to bone
     Route: 058
     Dates: start: 20190326
  8. NOVALGIN (AUSTRIA) [Concomitant]
     Dosage: 2-2-2? FREQUENCY TEXT:OTHER
     Route: 048
     Dates: start: 20181023
  9. DIPHENHYDRAMINE HYDROCHLORIDE [Concomitant]
     Active Substance: DIPHENHYDRAMINE HYDROCHLORIDE
     Route: 042
     Dates: end: 20200703
  10. DEXAMETHASONE [Concomitant]
     Active Substance: DEXAMETHASONE
     Route: 048
     Dates: start: 20181017, end: 20200703
  11. DEXAMETHASONE [Concomitant]
     Active Substance: DEXAMETHASONE
     Route: 048
     Dates: start: 20211126, end: 20211129
  12. DEXAMETHASONE [Concomitant]
     Active Substance: DEXAMETHASONE
     Route: 048
     Dates: start: 20211129, end: 20211202
  13. DEXAMETHASONE [Concomitant]
     Active Substance: DEXAMETHASONE
     Dosage: 2-0-2
     Route: 048
     Dates: start: 20211025, end: 20211104
  14. DEXAMETHASONE [Concomitant]
     Active Substance: DEXAMETHASONE
     Route: 048
     Dates: start: 20211105, end: 20211106
  15. DEXAMETHASONE [Concomitant]
     Active Substance: DEXAMETHASONE
     Dosage: 1/2-0-1/2
     Route: 048
     Dates: start: 20211107, end: 20211108
  16. ZOFRAN [Concomitant]
     Active Substance: ONDANSETRON HYDROCHLORIDE
     Route: 042
     Dates: start: 20181017, end: 20200703
  17. RANITIDINE HYDROCHLORIDE [Concomitant]
     Active Substance: RANITIDINE HYDROCHLORIDE
     Route: 042
     Dates: start: 20181017, end: 20200703
  18. EMEND [Concomitant]
     Active Substance: APREPITANT
     Route: 048
     Dates: start: 20181120, end: 20200703
  19. ASTEC (AUSTRIA) [Concomitant]
     Route: 062
     Dates: start: 20181023
  20. NEURONTIN [Concomitant]
     Active Substance: GABAPENTIN
     Route: 048
     Dates: start: 20181023, end: 20211027
  21. NEURONTIN [Concomitant]
     Active Substance: GABAPENTIN
     Dosage: 2-2-2
     Route: 048
     Dates: start: 20211027
  22. BUPRENORPHINE HYDROCHLORIDE [Concomitant]
     Active Substance: BUPRENORPHINE HYDROCHLORIDE
     Route: 060
     Dates: start: 20181023
  23. PARACODIN [Concomitant]
     Route: 048
     Dates: start: 20180715
  24. POLYETHYLENE GLYCOL 3350\POTASSIUM CHLORIDE\SODIUM BICARBONATE\SODIUM [Concomitant]
     Active Substance: POLYETHYLENE GLYCOL 3350\POTASSIUM CHLORIDE\SODIUM BICARBONATE\SODIUM CHLORIDE
     Route: 048
     Dates: start: 20181023
  25. ZOFRAN [Concomitant]
     Active Substance: ONDANSETRON HYDROCHLORIDE
     Dosage: 1-0-1
     Route: 060
     Dates: start: 20181023
  26. PASPERTIN [Concomitant]
     Dosage: 1-1-1
     Route: 048
     Dates: start: 20181023
  27. LEVETIRACETAM [Concomitant]
     Active Substance: LEVETIRACETAM
     Dosage: 1-0-1
     Route: 048
     Dates: start: 20211125
  28. DIPYRONE [Concomitant]
     Active Substance: DIPYRONE
     Dosage: 2-2-0
     Route: 048
     Dates: start: 20211025
  29. PANTOPRAZOLE SODIUM [Concomitant]
     Active Substance: PANTOPRAZOLE SODIUM
     Route: 048
     Dates: start: 20211025
  30. HYDROMORPHONE HYDROCHLORIDE [Concomitant]
     Active Substance: HYDROMORPHONE HYDROCHLORIDE
     Route: 048
     Dates: start: 20211027
  31. APREPITANT [Concomitant]
     Active Substance: APREPITANT
     Route: 048
     Dates: start: 20211129
  32. ONDANSETRON [Concomitant]
     Active Substance: ONDANSETRON
     Route: 048
     Dates: start: 20211129
  33. DEXAMETHASONE [Concomitant]
     Active Substance: DEXAMETHASONE
     Route: 048
     Dates: start: 20211129
  34. FUCIDIN [Concomitant]
     Active Substance: FUSIDATE SODIUM
     Route: 048
     Dates: start: 20181113, end: 20181120
  35. DALACIN [Concomitant]
     Dosage: 2-2-2
     Route: 048
     Dates: start: 20181113, end: 20181119
  36. AUGMENTIN [Concomitant]
     Active Substance: AMOXICILLIN\CLAVULANATE POTASSIUM
     Route: 048
     Dates: start: 20190926, end: 20191020
  37. SELEXID [Concomitant]
     Route: 048
     Dates: start: 20191016, end: 20191020
  38. LACTULOSE [Concomitant]
     Active Substance: LACTULOSE
     Route: 048
     Dates: start: 20200826
  39. HYDROMORPHONE HYDROCHLORIDE [Concomitant]
     Active Substance: HYDROMORPHONE HYDROCHLORIDE
     Route: 048
     Dates: start: 20200826, end: 20200917
  40. HYDROMORPHONE HYDROCHLORIDE [Concomitant]
     Active Substance: HYDROMORPHONE HYDROCHLORIDE
     Route: 048
     Dates: start: 20200826, end: 20200917

REACTIONS (1)
  - Lymphoedema [Recovered/Resolved]

NARRATIVE: CASE EVENT DATE: 20191120
